FAERS Safety Report 7448629-0 (Version None)
Quarter: 2011Q2

REPORT INFORMATION
  Report Type: 
  Country: None (occurrence: None)
  Receive Date: 20110429
  Receipt Date: 20100607
  Transmission Date: 20111010
  Serious: No
  Sender: FDA-Public Use
  Company Number: US-ASTRAZENECA-2010SE26234

PATIENT
  Sex: Female

DRUGS (4)
  1. NEXIUM [Suspect]
     Route: 048
     Dates: start: 20090101
  2. SUCRALFATE [Concomitant]
  3. PROMETHAZINE [Concomitant]
  4. NEXIUM [Suspect]
     Route: 048
     Dates: start: 20000101

REACTIONS (7)
  - MUSCULOSKELETAL CHEST PAIN [None]
  - ABDOMINAL PAIN UPPER [None]
  - ULCER [None]
  - SWELLING FACE [None]
  - BACK PAIN [None]
  - VOMITING [None]
  - DRUG DOSE OMISSION [None]
